FAERS Safety Report 10211007 (Version 4)
Quarter: 2014Q3

REPORT INFORMATION
  Report Type: Spontaneous
  Country: CA (occurrence: CA)
  Receive Date: 20140602
  Receipt Date: 20140804
  Transmission Date: 20150326
  Serious: Yes (Death, Other)
  Sender: FDA-Public Use
  Company Number: CA-NAPPMUNDI-CAN-2014-0004941

PATIENT
  Age: 95 Year
  Sex: Female
  Weight: 52.15 kg

DRUGS (8)
  1. VITAMINS                           /90003601/ [Concomitant]
     Active Substance: VITAMINS
     Indication: PRODUCT USED FOR UNKNOWN INDICATION
     Dosage: UNK
     Route: 065
  2. METOPROLOL [Interacting]
     Active Substance: METOPROLOL
     Indication: PRODUCT USED FOR UNKNOWN INDICATION
     Dosage: UNK
     Route: 048
  3. LOPRESSOR [Interacting]
     Active Substance: METOPROLOL TARTRATE
     Indication: PRODUCT USED FOR UNKNOWN INDICATION
     Dosage: UNK
     Route: 065
  4. DILAUDID [Interacting]
     Active Substance: HYDROMORPHONE HYDROCHLORIDE
     Dosage: 0.2 MG Q3H PRN
     Route: 058
  5. IRON [Concomitant]
     Active Substance: IRON
     Indication: PRODUCT USED FOR UNKNOWN INDICATION
     Dosage: UNK
     Route: 065
  6. OXYGEN. [Concomitant]
     Active Substance: OXYGEN
     Indication: PRODUCT USED FOR UNKNOWN INDICATION
     Dosage: UNK
     Route: 045
  7. DILAUDID [Suspect]
     Active Substance: HYDROMORPHONE HYDROCHLORIDE
     Indication: PRODUCT USED FOR UNKNOWN INDICATION
     Dosage: 0.2 MG, STAT TO BE REPEATED IN 30 MIN IF NEEDED
     Route: 058
     Dates: start: 20140521
  8. HEPARIN [Concomitant]
     Active Substance: HEPARIN SODIUM
     Indication: PRODUCT USED FOR UNKNOWN INDICATION
     Dosage: UNK
     Route: 065

REACTIONS (13)
  - Agitation [Unknown]
  - Respiratory arrest [Fatal]
  - Vital signs measurement [Fatal]
  - Bronchospasm [Unknown]
  - Tachypnoea [Unknown]
  - Discomfort [Unknown]
  - Drug interaction [Fatal]
  - Hyperventilation [Unknown]
  - Off label use [Unknown]
  - Cyanosis [Unknown]
  - Euthanasia [Fatal]
  - Overdose [Fatal]
  - Panic reaction [Unknown]

NARRATIVE: CASE EVENT DATE: 20140522
